FAERS Safety Report 12073183 (Version 1)
Quarter: 2016Q1

REPORT INFORMATION
  Report Type: Spontaneous
  Country: US (occurrence: None)
  Receive Date: 20160211
  Receipt Date: 20160211
  Transmission Date: 20160526
  Serious: Yes (Other)
  Sender: FDA-Public Use
  Company Number: None

PATIENT
  Age: 74 Year
  Sex: Female
  Weight: 72.58 kg

DRUGS (17)
  1. REMERON [Concomitant]
     Active Substance: MIRTAZAPINE
  2. B VITAMINS [Concomitant]
     Active Substance: CYANOCOBALAMIN\DEXPANTHENOL\NIACINAMIDE\PYRIDOXINE HYDROCHLORIDE\RIBOFLAVIN 5^-PHOSPHATE SODIUM\THIAMINE HYDROCHLORIDE\VITAMIN B COMPLEX
  3. NEURONTIN [Concomitant]
     Active Substance: GABAPENTIN
  4. OMEPRAZOLE  (PRN) CETIRIZINE [Concomitant]
  5. NIACIN. [Concomitant]
     Active Substance: NIACIN
  6. CALCIUM [Concomitant]
     Active Substance: CALCIUM
  7. RECLAST [Suspect]
     Active Substance: ZOLEDRONIC ACID
     Indication: BONE DENSITY ABNORMAL
     Dosage: ONCE YEARLY INTO A VIEN
     Dates: start: 20160203, end: 20160203
  8. TURMERIC [Concomitant]
     Active Substance: TURMERIC
  9. VITAMIN D3 [Concomitant]
     Active Substance: CHOLECALCIFEROL
  10. RECLAST [Suspect]
     Active Substance: ZOLEDRONIC ACID
     Indication: OSTEOPENIA
     Dosage: ONCE YEARLY INTO A VIEN
     Dates: start: 20160203, end: 20160203
  11. PROBIOTICS [Concomitant]
     Active Substance: PROBIOTICS NOS
  12. ESTROVEN [Concomitant]
     Active Substance: DIETARY SUPPLEMENT
  13. FLAX SEED [Concomitant]
     Active Substance: FLAX SEED
  14. LEXVOTHYROXINE LOSARTAN/HCTZ [Concomitant]
  15. ASA [Concomitant]
     Active Substance: ASPIRIN
  16. VALERIAN ROOT [Concomitant]
     Active Substance: VALERIAN
  17. OMEGA 3 [Concomitant]
     Active Substance: OMEGA-3 FATTY ACIDS

REACTIONS (6)
  - Mobility decreased [None]
  - Pain in extremity [None]
  - Head discomfort [None]
  - Neck pain [None]
  - Malaise [None]
  - Pain [None]

NARRATIVE: CASE EVENT DATE: 20160203
